FAERS Safety Report 5844703-0 (Version None)
Quarter: 2008Q3

REPORT INFORMATION
  Report Type: 
  Country: None (occurrence: None)
  Receive Date: 20080814
  Receipt Date: 20080709
  Transmission Date: 20090109
  Serious: No
  Sender: FDA-Public Use
  Company Number: US-BAYER-200828703NA

PATIENT
  Age: 42 Year
  Sex: Male
  Weight: 113 kg

DRUGS (4)
  1. ULTRAVIST 150 [Suspect]
     Indication: COMPUTERISED TOMOGRAM ABDOMEN
     Route: 042
     Dates: start: 20080709, end: 20080709
  2. CONTRAST MEDIA [Concomitant]
     Dates: start: 20080709, end: 20080709
  3. DIOVAN [Concomitant]
  4. AVONEX [Concomitant]

REACTIONS (2)
  - PRURITUS [None]
  - URTICARIA [None]
